FAERS Safety Report 8523291-4 (Version None)
Quarter: 2012Q3

REPORT INFORMATION
  Report Type: 
  Country: None (occurrence: None)
  Receive Date: 20120713
  Receipt Date: 20120713
  Transmission Date: 20120928
  Serious: Yes (Life-Threatening, Hospitalization)
  Sender: FDA-Public Use
  Company Number: None

PATIENT
  Age: 50 Year
  Sex: Female
  Weight: 97.5234 kg

DRUGS (1)
  1. METHOTREXATE [Suspect]
     Indication: ARTHRITIS
     Dosage: 7 ONCE WEEKLY PO
     Route: 048

REACTIONS (6)
  - FULL BLOOD COUNT DECREASED [None]
  - MULTI-ORGAN FAILURE [None]
  - POLLAKIURIA [None]
  - MUCOUS MEMBRANE DISORDER [None]
  - HAEMATOCHEZIA [None]
  - ALOPECIA [None]
